FAERS Safety Report 6397742-8 (Version None)
Quarter: 2009Q4

REPORT INFORMATION
  Report Type: 
  Country: None (occurrence: None)
  Receive Date: 20091012
  Receipt Date: 20091005
  Transmission Date: 20100525
  Serious: Yes (Other)
  Sender: FDA-Public Use
  Company Number: US-ELI_LILLY_AND_COMPANY-US200910000908

PATIENT
  Sex: Female

DRUGS (6)
  1. EFFIENT [Suspect]
     Dosage: 10 MG, DAILY (1/D)
     Dates: start: 20090901
  2. ASPIRIN [Concomitant]
     Dosage: 325 MG, DAILY (1/D)
  3. LISINOPRIL [Concomitant]
     Dosage: 10 MG, DAILY (1/D)
  4. COREG [Concomitant]
     Dosage: 6.5 MG, 2/D
  5. LIPITOR [Concomitant]
     Dosage: 80 MG, DAILY (1/D)
  6. SPIRONOLACTONE [Concomitant]
     Dosage: 25 MG, DAILY (1/D)

REACTIONS (5)
  - ALANINE AMINOTRANSFERASE INCREASED [None]
  - ASPARTATE AMINOTRANSFERASE INCREASED [None]
  - BLOOD ALKALINE PHOSPHATASE INCREASED [None]
  - BLOOD BILIRUBIN INCREASED [None]
  - MALAISE [None]
